FAERS Safety Report 6563533-8 (Version None)
Quarter: 2010Q1

REPORT INFORMATION
  Report Type: 
  Country: None (occurrence: None)
  Receive Date: 20100130
  Receipt Date: 20091214
  Transmission Date: 20100710
  Serious: No
  Sender: FDA-Public Use
  Company Number: US-ABBOTT-09P-163-0614661-00

PATIENT
  Sex: Female
  Weight: 89.892 kg

DRUGS (1)
  1. HUMIRA [Suspect]
     Indication: RHEUMATOID ARTHRITIS
     Route: 058

REACTIONS (6)
  - DENTAL CARIES [None]
  - EAR DISCOMFORT [None]
  - EAR INFECTION [None]
  - FACIAL PAIN [None]
  - SINUSITIS [None]
  - TOOTH INFECTION [None]
